FAERS Safety Report 19878185 (Version 2)
Quarter: 2021Q3

REPORT INFORMATION
  Report Type: Report from Study
  Country: AU (occurrence: AU)
  Receive Date: 20210924
  Receipt Date: 20210928
  Transmission Date: 20211014
  Serious: Yes (Hospitalization)
  Sender: FDA-Public Use
  Company Number: AU-GLAXOSMITHKLINE-AU2021GSK198688

PATIENT
  Age: 59 Year
  Sex: Male

DRUGS (10)
  1. VALACICLOVIR [Concomitant]
     Active Substance: VALACYCLOVIR HYDROCHLORIDE
     Indication: PROPHYLAXIS
     Dosage: UNK
     Route: 048
     Dates: start: 20210831
  2. VOLTAREN [Concomitant]
     Active Substance: DICLOFENAC SODIUM
     Indication: BACK PAIN
     Dosage: UNK, PRN
     Route: 048
     Dates: start: 20210905
  3. BELANTAMAB MAFODOTIN. [Suspect]
     Active Substance: BELANTAMAB MAFODOTIN
     Indication: PLASMA CELL MYELOMA
     Dosage: 1.9 MG/KG
  4. BORTEZOMIB. [Suspect]
     Active Substance: BORTEZOMIB
     Indication: PLASMA CELL MYELOMA
     Dosage: UNK
  5. TURMERIC EXTRACT [Concomitant]
     Indication: INFLAMMATION
     Dosage: 2 DF, QD
     Route: 048
     Dates: start: 202106
  6. REFRESH CELLUVISC [Concomitant]
     Active Substance: CARBOXYMETHYLCELLULOSE SODIUM
     Indication: PROPHYLAXIS
     Dosage: UNK DROPS, PRN
     Route: 031
     Dates: start: 20210831
  7. PARACETAMOL [Concomitant]
     Active Substance: ACETAMINOPHEN
     Indication: BACK PAIN
     Dosage: UNK, PRN
     Route: 048
     Dates: start: 20210909
  8. TRIAMCINOLONE [Concomitant]
     Active Substance: TRIAMCINOLONE
     Indication: BACK PAIN
     Dosage: 10 MG, EVERY 3 MONTHS
     Route: 030
     Dates: start: 20210723
  9. OXYCODONE [Concomitant]
     Active Substance: OXYCODONE
     Indication: BACK PAIN
     Dosage: UNK, PRN
     Route: 048
     Dates: start: 20210907, end: 20210908
  10. DEXAMETHASONE. [Suspect]
     Active Substance: DEXAMETHASONE

REACTIONS (1)
  - Metapneumovirus infection [Not Recovered/Not Resolved]

NARRATIVE: CASE EVENT DATE: 20210916
